FAERS Safety Report 9632513 (Version 1)
Quarter: 2013Q4

REPORT INFORMATION
  Report Type: Spontaneous
  Country: US (occurrence: US)
  Receive Date: 20131018
  Receipt Date: 20131018
  Transmission Date: 20140711
  Serious: Yes (Hospitalization)
  Sender: FDA-Public Use
  Company Number: US-BAYER-2013-126099

PATIENT
  Age: 16 Year
  Sex: Female

DRUGS (6)
  1. YASMIN [Suspect]
  2. KETOCONAZOLE [Concomitant]
  3. CITALOPRAM [Concomitant]
  4. MUCINEX [Concomitant]
  5. NAPROXEN [Concomitant]
  6. CYCLOBENZAPRINE [Concomitant]

REACTIONS (3)
  - Deep vein thrombosis [None]
  - Pelvic venous thrombosis [None]
  - Pulmonary embolism [None]
